FAERS Safety Report 10152745 (Version 1)
Quarter: 2014Q2

REPORT INFORMATION
  Report Type: Spontaneous
  Country: US (occurrence: None)
  Receive Date: 20140502
  Receipt Date: 20140502
  Transmission Date: 20141212
  Serious: No
  Sender: FDA-Public Use
  Company Number: None

PATIENT
  Age: 65 Year
  Sex: Female

DRUGS (2)
  1. ZALTRAP [Suspect]
     Indication: COLORECTAL CANCER METASTATIC
     Dosage: Q2 WEEKS
     Route: 042
     Dates: start: 20130709
  2. FOLFIRIN [Concomitant]

REACTIONS (4)
  - Lacrimation increased [None]
  - Pruritus [None]
  - Swelling [None]
  - Erythema [None]
